FAERS Safety Report 12552055 (Version 2)
Quarter: 2017Q3

REPORT INFORMATION
  Report Type: Spontaneous
  Country: ZA (occurrence: ZA)
  Receive Date: 20160713
  Receipt Date: 20170829
  Transmission Date: 20171127
  Serious: Yes (Death, Other)
  Sender: FDA-Public Use
  Company Number: ZA-SUN PHARMACEUTICAL INDUSTRIES LTD-2016R1-119777

PATIENT
  Age: 9 Year
  Sex: Female

DRUGS (1)
  1. PROPRANOLOL [Suspect]
     Active Substance: PROPRANOLOL HYDROCHLORIDE
     Indication: PRODUCT USED FOR UNKNOWN INDICATION
     Dosage: 4 MG/KG, DAILY
     Route: 065

REACTIONS (8)
  - Pseudomonal sepsis [Unknown]
  - Pneumatosis [Unknown]
  - Stress ulcer [Unknown]
  - Diarrhoea [Unknown]
  - Acinetobacter infection [Unknown]
  - Pseudomonas infection [Unknown]
  - Septic shock [Fatal]
  - Intestinal ischaemia [Fatal]
